FAERS Safety Report 25045318 (Version 3)
Quarter: 2025Q3

REPORT INFORMATION
  Report Type: Spontaneous
  Country: US (occurrence: US)
  Receive Date: 20250306
  Receipt Date: 20250723
  Transmission Date: 20251021
  Serious: Yes (Other)
  Sender: UCB
  Company Number: US-UCBSA-2025012312

PATIENT
  Sex: Female
  Weight: 70.113 kg

DRUGS (3)
  1. BIMZELX [Suspect]
     Active Substance: BIMEKIZUMAB-BKZX
     Indication: Ankylosing spondylitis
     Dosage: 160 MILLIGRAM, EV 4 WEEKS
     Route: 058
     Dates: start: 20241218
  2. BIMZELX [Suspect]
     Active Substance: BIMEKIZUMAB-BKZX
     Indication: Polyarthritis
     Dosage: 160 MILLIGRAM, EV 4 WEEKS
     Route: 058
  3. BIMZELX [Suspect]
     Active Substance: BIMEKIZUMAB-BKZX
     Indication: Off label use

REACTIONS (5)
  - Ankylosing spondylitis [Recovering/Resolving]
  - Oral mucosal blistering [Unknown]
  - Fungal pharyngitis [Unknown]
  - Drug ineffective [Unknown]
  - Off label use [Unknown]
